FAERS Safety Report 25332038 (Version 1)
Quarter: 2025Q2

REPORT INFORMATION
  Report Type: Spontaneous
  Country: US (occurrence: US)
  Receive Date: 20250519
  Receipt Date: 20250519
  Transmission Date: 20250716
  Serious: Yes (Disabling, Other)
  Sender: ELI LILLY AND COMPANY
  Company Number: US-ELI_LILLY_AND_COMPANY-US202505005953

PATIENT
  Age: 71 Year
  Sex: Female

DRUGS (3)
  1. EMGALITY [Suspect]
     Active Substance: GALCANEZUMAB-GNLM
     Indication: Migraine
     Dosage: 120 MG, MONTHLY (1/M), FIRST DEVICE
     Route: 065
  2. EMGALITY [Suspect]
     Active Substance: GALCANEZUMAB-GNLM
     Dosage: 120 MG, MONTHLY (1/M), FIRST OF THE TWO DEVICES
     Route: 065
  3. EMGALITY [Suspect]
     Active Substance: GALCANEZUMAB-GNLM
     Dosage: 120 MG, MONTHLY (1/M), SECOND OF THE TWO DEVICES
     Route: 065

REACTIONS (7)
  - Neoplasm malignant [Unknown]
  - Blindness [Unknown]
  - CSF volume increased [Unknown]
  - Deafness unilateral [Unknown]
  - Injection site pain [Unknown]
  - Drug ineffective [Unknown]
  - Cluster headache [Unknown]
